FAERS Safety Report 25632846 (Version 1)
Quarter: 2025Q3

REPORT INFORMATION
  Report Type: Spontaneous
  Country: SG (occurrence: SG)
  Receive Date: 20250801
  Receipt Date: 20250801
  Transmission Date: 20251021
  Serious: Yes (Hospitalization)
  Sender: CHATTEM
  Company Number: SG-OPELLA-2025OHG023362

PATIENT
  Age: 54 Year
  Sex: Female

DRUGS (1)
  1. TRIAMCINOLONE [Suspect]
     Active Substance: TRIAMCINOLONE
     Indication: Product used for unknown indication
     Route: 065

REACTIONS (2)
  - Dyspnoea [Unknown]
  - Pruritus [Unknown]

NARRATIVE: CASE EVENT DATE: 20250714
